FAERS Safety Report 14686608 (Version 1)
Quarter: 2018Q1

REPORT INFORMATION
  Report Type: Spontaneous
  Country: US (occurrence: US)
  Receive Date: 20180326
  Receipt Date: 20180326
  Transmission Date: 20180509
  Serious: No
  Sender: FDA-Public Use
  Company Number: None

PATIENT
  Age: 61 Year
  Sex: Female

DRUGS (1)
  1. HUMIRA [Suspect]
     Active Substance: ADALIMUMAB
     Indication: PSORIATIC ARTHROPATHY
     Route: 058
     Dates: start: 20171114, end: 20180311

REACTIONS (6)
  - Vomiting [None]
  - Fatigue [None]
  - Musculoskeletal stiffness [None]
  - Nausea [None]
  - Pain in extremity [None]
  - Musculoskeletal disorder [None]

NARRATIVE: CASE EVENT DATE: 20180311
